FAERS Safety Report 18353474 (Version 1)
Quarter: 2020Q4

REPORT INFORMATION
  Report Type: Spontaneous
  Country: US (occurrence: US)
  Receive Date: 20201006
  Receipt Date: 20201006
  Transmission Date: 20210114
  Serious: No
  Sender: FDA-Public Use
  Company Number: US-ALLERGAN-2012427US

PATIENT
  Sex: Male

DRUGS (4)
  1. VITAMINS                           /00067501/ [Concomitant]
     Active Substance: VITAMINS
  2. LINZESS [Suspect]
     Active Substance: LINACLOTIDE
     Indication: GASTROOESOPHAGEAL REFLUX DISEASE
     Dosage: 145 ?G, QD
     Route: 048
  3. LINZESS [Suspect]
     Active Substance: LINACLOTIDE
     Indication: FLATULENCE
  4. LINZESS [Suspect]
     Active Substance: LINACLOTIDE
     Indication: ABDOMINAL PAIN UPPER

REACTIONS (7)
  - Adverse event [Unknown]
  - Off label use [Unknown]
  - Abnormal faeces [Unknown]
  - Therapeutic product effect incomplete [Unknown]
  - Headache [Recovered/Resolved]
  - Abdominal pain upper [Unknown]
  - Faeces discoloured [Unknown]

NARRATIVE: CASE EVENT DATE: 2020
